FAERS Safety Report 15931220 (Version 1)
Quarter: 2019Q1

REPORT INFORMATION
  Report Type: Spontaneous
  Country: US (occurrence: US)
  Receive Date: 20190207
  Receipt Date: 20190207
  Transmission Date: 20190417
  Serious: Yes (Hospitalization)
  Sender: FDA-Public Use
  Company Number: None

PATIENT
  Age: 31 Month
  Sex: Female

DRUGS (2)
  1. MULTIVIT/FL, KEPPRA,PHENOBARB [Concomitant]
  2. VIGABATRIN. [Suspect]
     Active Substance: VIGABATRIN
     Indication: EPILEPSY
     Dosage: ?          OTHER FREQUENCY:3 TIMES DAILY;?
     Route: 048
     Dates: start: 20170915

REACTIONS (2)
  - Hospitalisation [None]
  - Therapy change [None]

NARRATIVE: CASE EVENT DATE: 20190206
